FAERS Safety Report 9721457 (Version 1)
Quarter: 2013Q4

REPORT INFORMATION
  Report Type: Report from Study
  Country: TR (occurrence: TR)
  Receive Date: 20131129
  Receipt Date: 20131129
  Transmission Date: 20140711
  Serious: Yes (Death)
  Sender: FDA-Public Use
  Company Number: TR-ASTRAZENECA-2013SE87065

PATIENT
  Age: 29413 Day
  Sex: Male
  Weight: 90 kg

DRUGS (1)
  1. BELOC ZOK [Suspect]
     Route: 048

REACTIONS (1)
  - Death [Fatal]
